FAERS Safety Report 8107299-9 (Version None)
Quarter: 2012Q1

REPORT INFORMATION
  Report Type: 
  Country: None (occurrence: None)
  Receive Date: 20120202
  Receipt Date: 20120127
  Transmission Date: 20120608
  Serious: Yes (Hospitalization, Other)
  Sender: FDA-Public Use
  Company Number: US-PFIZER INC-2012023159

PATIENT
  Sex: Female

DRUGS (4)
  1. BUSPAR [Concomitant]
     Dosage: UNK
  2. TRAZODONE [Concomitant]
     Dosage: UNK
  3. EFFEXOR XR [Suspect]
     Dosage: 225 MG, 1X/DAY
     Route: 048
  4. GEODON [Concomitant]
     Dosage: UNK

REACTIONS (4)
  - JUDGEMENT IMPAIRED [None]
  - DISTURBANCE IN ATTENTION [None]
  - PSYCHIATRIC SYMPTOM [None]
  - DISTURBANCE IN SOCIAL BEHAVIOUR [None]
